FAERS Safety Report 14652272 (Version 2)
Quarter: 2018Q1

REPORT INFORMATION
  Report Type: Report from Study
  Country: BR (occurrence: BR)
  Receive Date: 20180318
  Receipt Date: 20180328
  Transmission Date: 20180509
  Serious: No
  Sender: FDA-Public Use
  Company Number: PHHY2018BR043297

PATIENT
  Sex: Female

DRUGS (5)
  1. DEPAKOTE [Concomitant]
     Active Substance: DIVALPROEX SODIUM
     Indication: DEMENTIA ALZHEIMER^S TYPE
     Dosage: 3 DF, QD (2 YEARS AGO)
     Route: 048
  2. ESCITALOPRAM [Concomitant]
     Active Substance: ESCITALOPRAM OXALATE
     Indication: PRODUCT USED FOR UNKNOWN INDICATION
     Dosage: 1 DF, QD (2 YAERS AGO)
     Route: 048
  3. QUETIAPINE. [Concomitant]
     Active Substance: QUETIAPINE
     Indication: DEMENTIA ALZHEIMER^S TYPE
     Dosage: 0.5 DF, QD (2 YEARS AGO)
     Route: 048
  4. CALCIUM [Concomitant]
     Active Substance: CALCIUM
     Indication: OSTEOPOROSIS
     Dosage: 1 DF, UNK (5 YEARS AGO)
     Route: 048
  5. EXELON PATCH [Suspect]
     Active Substance: RIVASTIGMINE
     Indication: DEMENTIA ALZHEIMER^S TYPE
     Dosage: 4.6 MG (PATCH 5 CM2), QD (2 YEARS AGO)
     Route: 062

REACTIONS (8)
  - Dementia Alzheimer^s type [Not Recovered/Not Resolved]
  - Gait disturbance [Not Recovered/Not Resolved]
  - Memory impairment [Not Recovered/Not Resolved]
  - Malaise [Not Recovered/Not Resolved]
  - Somnolence [Unknown]
  - Mood altered [Not Recovered/Not Resolved]
  - Depressed mood [Recovering/Resolving]
  - Depression [Not Recovered/Not Resolved]
